FAERS Safety Report 19462326 (Version 1)
Quarter: 2021Q2

REPORT INFORMATION
  Report Type: Spontaneous
  Country: PL (occurrence: PL)
  Receive Date: 20210625
  Receipt Date: 20210625
  Transmission Date: 20210717
  Serious: Yes (Hospitalization, Other)
  Sender: FDA-Public Use
  Company Number: PL-TEVA-2021-PL-1925625

PATIENT
  Age: 68 Year
  Sex: Female
  Weight: 61 kg

DRUGS (5)
  1. 5?FLUOROURACIL?EBEWE [Suspect]
     Active Substance: FLUOROURACIL
     Dosage: 894MG
     Route: 065
     Dates: start: 20170906, end: 20170908
  2. CALCII FOLINAS PENTAHYDRICUS [Suspect]
     Active Substance: LEUCOVORIN CALCIUM PENTAHYDRATE
     Dosage: 298MG
     Route: 065
     Dates: start: 20170906, end: 20170908
  3. OXALIPLATINUM ACCORD [Suspect]
     Active Substance: OXALIPLATIN
     Dosage: 126.6MG
     Route: 065
     Dates: start: 20170906
  4. AVASTIN [Suspect]
     Active Substance: BEVACIZUMAB
     Dosage: 550MG
     Dates: start: 20170906
  5. 5?FLUOROURACIL?EBEWE [Suspect]
     Active Substance: FLUOROURACIL
     Dosage: 596MG
     Route: 065
     Dates: start: 20170906, end: 20170908

REACTIONS (1)
  - Neutropenia [Unknown]

NARRATIVE: CASE EVENT DATE: 20170920
